FAERS Safety Report 5467795-X (Version None)
Quarter: 2007Q3

REPORT INFORMATION
  Report Type: 
  Country: None (occurrence: None)
  Receive Date: 20070814
  Receipt Date: 20070716
  Transmission Date: 20080115
  Serious: No
  Sender: FDA-Public Use
  Company Number: 200715188US

PATIENT
  Sex: Female

DRUGS (9)
  1. APIDRA [Suspect]
     Indication: TYPE 2 DIABETES MELLITUS
     Dosage: 20 U TID
     Dates: start: 20070713
  2. OPTICLIK [Suspect]
     Indication: TYPE 2 DIABETES MELLITUS
     Dates: start: 20070713
  3. LANTUS [Concomitant]
  4. QUETIAPINE FUMARATE                 (SEROQUEL /01270902/) [Concomitant]
  5. LISINOPRIL [Concomitant]
  6. ADENOSINE             (TRICOR              /00090101/) [Concomitant]
  7. OXYCODONE HYDROCHLORIDE                    (OXYCONTIN) [Concomitant]
  8. DULOXETINE HYDROCHLORIDE           (CYMBALTA) [Concomitant]
  9. LORAZEPAM [Concomitant]

REACTIONS (1)
  - BLOOD GLUCOSE DECREASED [None]
